FAERS Safety Report 5368669-5 (Version None)
Quarter: 2007Q2

REPORT INFORMATION
  Report Type: 
  Country: None (occurrence: None)
  Receive Date: 20070625
  Receipt Date: 20070302
  Transmission Date: 20071010
  Serious: No
  Sender: FDA-Public Use
  Company Number: US-BRISTOL-MYERS SQUIBB COMPANY-13697925

PATIENT
  Age: 53 Year
  Sex: Female
  Weight: 57 kg

DRUGS (6)
  1. ORENCIA [Suspect]
     Indication: RHEUMATOID ARTHRITIS
     Route: 042
     Dates: end: 20070228
  2. PREDNISONE TAB [Concomitant]
  3. METHOTREXATE [Concomitant]
  4. KLOR-CON [Concomitant]
  5. LEVOTHYROXINE SODIUM [Concomitant]
  6. VITAMIN CAP [Concomitant]

REACTIONS (1)
  - FATIGUE [None]
